FAERS Safety Report 8008201-0 (Version None)
Quarter: 2011Q4

REPORT INFORMATION
  Report Type: 
  Country: None (occurrence: None)
  Receive Date: 20111227
  Receipt Date: 20111222
  Transmission Date: 20120403
  Serious: Yes (Life-Threatening)
  Sender: FDA-Public Use
  Company Number: GB-ROCHE-1025270

PATIENT
  Age: 41 Year
  Sex: Female

DRUGS (7)
  1. FLUTICASONE FUROATE [Concomitant]
     Route: 065
  2. OMEPRAZOLE [Concomitant]
     Route: 065
  3. FORMOTEROL FUMARATE [Concomitant]
     Route: 065
  4. BECLOMETHASONE DIPROPIONATE [Concomitant]
     Route: 065
  5. XOLAIR [Suspect]
     Indication: ASTHMA
     Route: 058
  6. ADCAL-D3 [Concomitant]
     Route: 065
  7. NUELIN SA [Concomitant]
     Route: 065

REACTIONS (1)
  - DEEP VEIN THROMBOSIS [None]
